FAERS Safety Report 17685149 (Version 1)
Quarter: 2020Q2

REPORT INFORMATION
  Report Type: Spontaneous
  Country: US (occurrence: US)
  Receive Date: 20200417
  Receipt Date: 20200417
  Transmission Date: 20200714
  Serious: No
  Sender: FDA-Public Use
  Company Number: None

PATIENT
  Age: 61 Year
  Sex: Female

DRUGS (1)
  1. IBRANCE [Suspect]
     Active Substance: PALBOCICLIB
     Indication: BREAST CANCER
     Dosage: ?          OTHER FREQUENCY:DAILY X 21 DAY;?
     Route: 048
     Dates: start: 20200408

REACTIONS (6)
  - Therapy interrupted [None]
  - Fall [None]
  - Nausea [None]
  - Fatigue [None]
  - Head injury [None]
  - Amnesia [None]

NARRATIVE: CASE EVENT DATE: 20200401
